FAERS Safety Report 5910761-8 (Version None)
Quarter: 2008Q4

REPORT INFORMATION
  Report Type: 
  Country: None (occurrence: None)
  Receive Date: 20081007
  Receipt Date: 20080417
  Transmission Date: 20090506
  Serious: Yes (Other)
  Sender: FDA-Public Use
  Company Number: US-ASTRAZENECA-2008UW07979

PATIENT
  Sex: Female

DRUGS (3)
  1. ARIMIDEX [Suspect]
     Indication: BREAST CANCER STAGE IV
     Route: 048
  2. FASLODEX [Suspect]
     Route: 030
  3. TAMOXIFEN CITRATE [Suspect]
     Route: 048

REACTIONS (2)
  - METASTASES TO SPINE [None]
  - NEOPLASM PROGRESSION [None]
